FAERS Safety Report 9165051 (Version 1)
Quarter: 2013Q1

REPORT INFORMATION
  Report Type: Spontaneous
  Country: FR (occurrence: FR)
  Receive Date: 20130315
  Receipt Date: 20130315
  Transmission Date: 20140127
  Serious: Yes (Other)
  Sender: FDA-Public Use
  Company Number: FR-PFIZER INC-2013052236

PATIENT
  Age: 57 Year
  Sex: Male

DRUGS (4)
  1. FLUOROURACILE PFIZER [Suspect]
     Indication: COLON CANCER
     Dosage: UNK
     Route: 042
     Dates: start: 20121018, end: 20121228
  2. ELOXATINE [Suspect]
     Indication: COLON CANCER
     Dosage: 95 MG, ACCORDING TO PROTOCOL
     Route: 042
     Dates: start: 20121018, end: 20121228
  3. XELODA [Suspect]
     Indication: COLON CANCER
     Dosage: 500 MG, 6 DF PER DAY
     Route: 048
     Dates: start: 20121127, end: 20121228
  4. FOLINIC ACID [Concomitant]
     Indication: COLON CANCER
     Dosage: UNK
     Dates: start: 20121018

REACTIONS (5)
  - Palmar-plantar erythrodysaesthesia syndrome [Not Recovered/Not Resolved]
  - Polyneuropathy [Not Recovered/Not Resolved]
  - Disease progression [Not Recovered/Not Resolved]
  - Colon cancer [Not Recovered/Not Resolved]
  - Decreased appetite [Unknown]
